FAERS Safety Report 21761775 (Version 3)
Quarter: 2023Q2

REPORT INFORMATION
  Report Type: Spontaneous
  Country: IL (occurrence: IL)
  Receive Date: 20221221
  Receipt Date: 20230501
  Transmission Date: 20230721
  Serious: Yes (Hospitalization, Other)
  Sender: FDA-Public Use
  Company Number: IL-CATALYST PHARMACEUTICALS, INC-IL-CATA-22-02802

PATIENT
  Age: 12 Year
  Sex: Female

DRUGS (2)
  1. FIRDAPSE [Suspect]
     Active Substance: AMIFAMPRIDINE PHOSPHATE
     Indication: Congenital myasthenic syndrome
     Dosage: 60 MILLIGRAM EVERY 1 DAY
     Route: 065
     Dates: start: 202101, end: 202111
  2. FIRDAPSE [Suspect]
     Active Substance: AMIFAMPRIDINE PHOSPHATE
     Dosage: 60 MILLIGRAM EVERY 1 DAY
     Route: 065
     Dates: start: 202111, end: 20230416

REACTIONS (6)
  - Anaemia [Recovering/Resolving]
  - Colitis [Not Recovered/Not Resolved]
  - NAT2 polymorphism [Unknown]
  - Drug level increased [Unknown]
  - Product use in unapproved indication [Unknown]
  - Product use issue [Unknown]

NARRATIVE: CASE EVENT DATE: 20210101
